FAERS Safety Report 4265683-8 (Version None)
Quarter: 2004Q1

REPORT INFORMATION
  Report Type: 
  Country: None (occurrence: None)
  Receive Date: 20040106
  Receipt Date: 20031223
  Transmission Date: 20041129
  Serious: Yes (Death, Hospitalization)
  Sender: FDA-Public Use
  Company Number: 03P-163-0245886-00

PATIENT
  Sex: Male

DRUGS (14)
  1. HUMIRA [Suspect]
     Indication: RHEUMATOID ARTHRITIS
     Dosage: 40 MG, 1 IN 2 WK, SUBCUTANEOUS
     Route: 058
     Dates: start: 20030701, end: 20031201
  2. METHOTREXATE [Concomitant]
  3. PREDNISONE [Concomitant]
  4. FOLIC ACID [Concomitant]
  5. ALLOPURINOL [Concomitant]
  6. GLIPIZIDE [Concomitant]
  7. COUMADIN [Concomitant]
  8. BUMETANIDE [Concomitant]
  9. PAROXETINE HCL [Concomitant]
  10. ISOSORBIDE MONONITRATE [Concomitant]
  11. POTASSIUM [Concomitant]
  12. LORAZEPAM [Concomitant]
  13. OXYCODONE HCL [Concomitant]
  14. CALCIUM [Concomitant]

REACTIONS (1)
  - CARDIAC DISORDER [None]
